FAERS Safety Report 10194614 (Version 1)
Quarter: 2014Q2

REPORT INFORMATION
  Report Type: Spontaneous
  Country: US (occurrence: US)
  Receive Date: 20140526
  Receipt Date: 20140526
  Transmission Date: 20141212
  Serious: No
  Sender: FDA-Public Use
  Company Number: US-BIOGENIDEC-2014BI044794

PATIENT
  Age: 45 Year
  Sex: Female

DRUGS (5)
  1. TECFIDERA [Suspect]
     Indication: MULTIPLE SCLEROSIS
     Route: 048
     Dates: start: 20140121
  2. TRAZODONE HCL [Concomitant]
  3. SIMVASTATIN [Concomitant]
  4. SAPHRIS [Concomitant]
  5. LEXAPRO [Concomitant]

REACTIONS (1)
  - Head discomfort [Unknown]
